FAERS Safety Report 20999767 (Version 1)
Quarter: 2022Q2

REPORT INFORMATION
  Report Type: Spontaneous
  Country: US (occurrence: None)
  Receive Date: 20220623
  Receipt Date: 20220623
  Transmission Date: 20220720
  Serious: No
  Sender: FDA-Public Use
  Company Number: None

PATIENT
  Age: 72 Year
  Sex: Female
  Weight: 63.9 kg

DRUGS (1)
  1. MOLNUPIRAVIR [Suspect]
     Active Substance: MOLNUPIRAVIR
     Indication: COVID-19
     Dosage: OTHER QUANTITY : 4 CAPSULE(S);?FREQUENCY : TWICE A DAY;?
     Route: 048

REACTIONS (5)
  - Hyperhidrosis [None]
  - Asthenia [None]
  - Dysphonia [None]
  - Diarrhoea [None]
  - Decreased appetite [None]

NARRATIVE: CASE EVENT DATE: 20220623
